FAERS Safety Report 7611786-7 (Version None)
Quarter: 2011Q3

REPORT INFORMATION
  Report Type: 
  Country: None (occurrence: None)
  Receive Date: 20110715
  Receipt Date: 20110711
  Transmission Date: 20111222
  Serious: Yes (Hospitalization)
  Sender: FDA-Public Use
  Company Number: BE-PFIZER INC-2008100969

PATIENT
  Age: 52 Year
  Sex: Female
  Weight: 60 kg

DRUGS (33)
  1. BLINDED ANIDULAFUNGIN [Suspect]
     Dosage: UNK, 1X/DAY
     Dates: start: 20081014, end: 20081019
  2. VORICONAZOLE [Suspect]
     Dosage: 228 MG, 2X/DAY
     Route: 042
     Dates: start: 20081015, end: 20081020
  3. LAUROMACROGOL 400/SODIUM OLEATE [Concomitant]
     Dosage: UNK
     Route: 042
     Dates: start: 20081011
  4. BLINDED NO SUBJECT DRUG [Suspect]
     Indication: ASPERGILLOSIS
     Dosage: UNK, 1X/DAY
     Dates: start: 20081013, end: 20081013
  5. VORICONAZOLE [Suspect]
     Indication: ASPERGILLOSIS
     Dosage: 342 MG, 1X/DAY
     Route: 042
     Dates: start: 20081013, end: 20081013
  6. TRAMADOL HCL [Concomitant]
     Dosage: UNK
     Route: 042
     Dates: start: 20081012, end: 20081021
  7. BIAFINE [Concomitant]
     Dosage: UNK
     Route: 062
     Dates: start: 20080926
  8. SOLU-CORTEF [Concomitant]
     Dosage: UNK
     Dates: start: 20081006
  9. BLINDED NO SUBJECT DRUG [Suspect]
     Dosage: UNK, 1X/DAY
     Dates: start: 20081014, end: 20081019
  10. VFEND [Suspect]
     Dosage: 200 MG, 2X/DAY
     Route: 042
     Dates: start: 20081020, end: 20081106
  11. SOLUTIONS FOR PARENTERAL NUTRITION [Concomitant]
     Dosage: UNK
     Route: 048
     Dates: start: 20080926
  12. PLACEBO [Suspect]
     Indication: ASPERGILLOSIS
     Dosage: UNK, 1X/DAY
     Dates: start: 20081013, end: 20081013
  13. PLACEBO [Suspect]
     Dosage: UNK, 1X/DAY
     Dates: start: 20081014, end: 20081019
  14. MAGNESIUM SULFATE [Concomitant]
     Dosage: UNK
     Route: 042
     Dates: start: 20080921, end: 20081127
  15. PIPERACILLIN AND TAZOBACTAM [Concomitant]
     Dosage: UNK
     Route: 042
     Dates: start: 20081019, end: 20081021
  16. POLARAMINE [Concomitant]
     Dosage: UNK
     Dates: start: 20081006
  17. BLINDED ANIDULAFUNGIN [Suspect]
     Indication: ASPERGILLOSIS
     Dosage: UNK, 1X/DAY
     Dates: start: 20081013, end: 20081013
  18. VORICONAZOLE [Suspect]
     Dosage: 570 MG, 1X/DAY
     Route: 042
     Dates: start: 20081014, end: 20081014
  19. NEXIUM [Concomitant]
     Route: 048
     Dates: start: 20081013
  20. LORAMET [Concomitant]
     Dosage: UNK
     Route: 048
     Dates: start: 20080929
  21. ZOVIRAX [Concomitant]
     Route: 042
     Dates: start: 20081003
  22. CASPOFUNGIN [Concomitant]
     Dosage: UNK
     Route: 042
     Dates: start: 20081020, end: 20081030
  23. LITICAN [Concomitant]
     Dosage: UNK
     Route: 042
     Dates: start: 20080101, end: 20081025
  24. ISOBETADINE [Concomitant]
     Dosage: UNK
     Route: 002
     Dates: start: 20080901
  25. VFEND [Suspect]
     Dosage: 200 MG, 2X/DAY
     Route: 048
     Dates: start: 20081107, end: 20081120
  26. LASIX [Concomitant]
     Dosage: UNK
     Route: 042
     Dates: start: 20081008, end: 20081026
  27. NEUPOGEN [Concomitant]
     Dosage: UNK
     Dates: start: 20081009
  28. TRANXENE [Concomitant]
     Dosage: UNK
     Route: 042
     Dates: start: 20081012
  29. XYZAL [Concomitant]
     Dosage: UNK
     Route: 048
     Dates: start: 20081021
  30. POTASSIUM CHLORIDE [Concomitant]
     Route: 042
     Dates: start: 20080921
  31. MEROPENEM [Concomitant]
     Dosage: UNK
     Route: 042
     Dates: start: 20081004
  32. FIBRE, DIETARY [Concomitant]
     Dosage: UNK
     Dates: start: 20081017, end: 20081019
  33. NICOTINE [Concomitant]
     Dosage: UNK
     Route: 062
     Dates: start: 20080918

REACTIONS (1)
  - ENCEPHALOPATHY [None]
